FAERS Safety Report 4657917-2 (Version None)
Quarter: 2005Q2

REPORT INFORMATION
  Report Type: 
  Country: None (occurrence: None)
  Receive Date: 20050510
  Receipt Date: 20050401
  Transmission Date: 20051028
  Serious: Yes (Disabling)
  Sender: FDA-Public Use
  Company Number: GB-SANOFI-SYNTHELABO-A01200501930

PATIENT
  Sex: Male
  Weight: 110 kg

DRUGS (5)
  1. CLOPIDOGREL BISULFATE [Suspect]
     Indication: STENT PLACEMENT
     Route: 048
     Dates: start: 20040308, end: 20050305
  2. LIPITOR [Suspect]
     Indication: MYOCARDIAL ISCHAEMIA
     Route: 048
     Dates: start: 20030404, end: 20030903
  3. LIPITOR [Suspect]
     Route: 048
     Dates: start: 20030904, end: 20050121
  4. RAMIPRIL [Concomitant]
     Indication: STENT PLACEMENT
     Route: 048
     Dates: start: 20040329
  5. ASPIRIN [Concomitant]
     Indication: STENT PLACEMENT
     Route: 048

REACTIONS (1)
  - RHABDOMYOLYSIS [None]
